FAERS Safety Report 9009547 (Version 1)
Quarter: 2013Q1

REPORT INFORMATION
  Report Type: Spontaneous
  Country: US (occurrence: US)
  Receive Date: 20130112
  Receipt Date: 20130112
  Transmission Date: 20140127
  Serious: Yes (Hospitalization)
  Sender: FDA-Public Use
  Company Number: US-009507513-1301USA001177

PATIENT
  Age: 56 Year
  Sex: Male

DRUGS (3)
  1. MONTELUKAST SODIUM [Suspect]
     Route: 048
  2. SEREVENT DISKUS [Suspect]
  3. FLOVENT [Suspect]

REACTIONS (3)
  - Pemphigus [Unknown]
  - Lung disorder [Unknown]
  - Antibody test positive [Unknown]
